FAERS Safety Report 5511807-1 (Version None)
Quarter: 2007Q4

REPORT INFORMATION
  Report Type: 
  Country: None (occurrence: None)
  Receive Date: 20071109
  Receipt Date: 20071017
  Transmission Date: 20080405
  Serious: No
  Sender: FDA-Public Use
  Company Number: US-BOEHRINGER INGELHEIM PHARMACEUTICALS, INC.-2007-BP-22979BP

PATIENT
  Sex: Female

DRUGS (5)
  1. ATROVENT HFA [Suspect]
     Indication: EMPHYSEMA
     Route: 055
     Dates: start: 20060101
  2. ALBUTEROL [Concomitant]
     Indication: EMPHYSEMA
  3. LISINOPRIL [Concomitant]
     Indication: HYPERTENSION
  4. VERAPAMIL [Concomitant]
     Indication: HEART RATE IRREGULAR
  5. THEOPHYLLINE [Concomitant]
     Indication: EMPHYSEMA

REACTIONS (1)
  - DRUG EFFECT DECREASED [None]
